FAERS Safety Report 25734600 (Version 2)
Quarter: 2025Q3

REPORT INFORMATION
  Report Type: Report from Study
  Country: US (occurrence: US)
  Receive Date: 20250828
  Receipt Date: 20250904
  Transmission Date: 20251020
  Serious: Yes (Hospitalization)
  Sender: JAZZ
  Company Number: US-JAZZ PHARMACEUTICALS-2025-US-020382

PATIENT
  Sex: Male
  Weight: 47.6 kg

DRUGS (10)
  1. EPIDIOLEX [Suspect]
     Active Substance: CANNABIDIOL
     Indication: Partial seizures
     Dosage: 6 MILLILITER, BID
  2. CLOBAZAM [Interacting]
     Active Substance: CLOBAZAM
     Indication: Product used for unknown indication
  3. LACOSAMIDE [Interacting]
     Active Substance: LACOSAMIDE
     Indication: Product used for unknown indication
  4. AUGMENTIN [Concomitant]
     Active Substance: AMOXICILLIN\CLAVULANATE POTASSIUM
     Indication: Product used for unknown indication
  5. RISPERDAL [Concomitant]
     Active Substance: RISPERIDONE
     Indication: Product used for unknown indication
  6. RISPERDAL [Concomitant]
     Active Substance: RISPERIDONE
  7. ZOFRAN [Concomitant]
     Active Substance: ONDANSETRON HYDROCHLORIDE
     Indication: Product used for unknown indication
  8. BRIVIACT [Concomitant]
     Active Substance: BRIVARACETAM
     Indication: Product used for unknown indication
  9. OMEPRAZOLE DELAYED RELEASE [OMEPRAZOLE] [Concomitant]
     Indication: Product used for unknown indication
  10. OMEPRAZOLE DELAYED RELEASE [OMEPRAZOLE] [Concomitant]

REACTIONS (8)
  - Generalised tonic-clonic seizure [Unknown]
  - Partial seizures [Unknown]
  - Drug interaction [Unknown]
  - Asthenia [Unknown]
  - Lethargy [Unknown]
  - Somnolence [Unknown]
  - Candida infection [Unknown]
  - Off label use [Unknown]
